FAERS Safety Report 4701496-8 (Version None)
Quarter: 2005Q2

REPORT INFORMATION
  Report Type: 
  Country: None (occurrence: None)
  Receive Date: 20050627
  Receipt Date: 20050617
  Transmission Date: 20051028
  Serious: Yes (Hospitalization, Other)
  Sender: FDA-Public Use
  Company Number: DEWYE756120JUN05

PATIENT
  Age: 55 Year
  Sex: Male

DRUGS (6)
  1. RAPAMUNE [Suspect]
     Indication: PROPHYLAXIS AGAINST TRANSPLANT REJECTION
     Dosage: 6 MG, ORAL
     Route: 048
  2. CORTICOSTEROID NOS (CORTICOSTEROID NOS) [Suspect]
  3. TACROLIMUS (TACROLIMUS) [Suspect]
     Dosage: 12 MG, ORAL
     Route: 048
  4. ZENAPAX [Concomitant]
  5. KEPINOL (SULFAMETHOXAZOLE/TRIMETHOPRIM) [Concomitant]
  6. VALCYTE [Concomitant]

REACTIONS (2)
  - BLOOD CREATININE INCREASED [None]
  - TRANSPLANT REJECTION [None]
